FAERS Safety Report 13138603 (Version 2)
Quarter: 2017Q1

REPORT INFORMATION
  Report Type: Spontaneous
  Country: US (occurrence: US)
  Receive Date: 20170123
  Receipt Date: 20170206
  Transmission Date: 20170428
  Serious: No
  Sender: FDA-Public Use
  Company Number: US-JNJFOC-20170112777

PATIENT
  Age: 76 Year
  Sex: Male

DRUGS (2)
  1. PEPCID AC [Suspect]
     Active Substance: FAMOTIDINE
     Route: 048
  2. PEPCID AC [Suspect]
     Active Substance: FAMOTIDINE
     Indication: PRODUCT USED FOR UNKNOWN INDICATION
     Route: 048
     Dates: start: 20161018, end: 20161204

REACTIONS (1)
  - Drug ineffective [Unknown]

NARRATIVE: CASE EVENT DATE: 20161018
